FAERS Safety Report 5735820-4 (Version None)
Quarter: 2008Q2

REPORT INFORMATION
  Report Type: 
  Country: None (occurrence: None)
  Receive Date: 20080509
  Receipt Date: 20080423
  Transmission Date: 20081010
  Serious: Yes (Other)
  Sender: FDA-Public Use
  Company Number: US-1166008

PATIENT

DRUGS (1)
  1. PREDNISOLONE ACETATE 1% SUSPENSION [Suspect]
     Indication: PROPHYLAXIS
     Dosage: (OPHTHALMIC)
     Route: 047

REACTIONS (1)
  - CORNEAL OPACITY [None]
